FAERS Safety Report 6784737-5 (Version None)
Quarter: 2010Q2

REPORT INFORMATION
  Report Type: 
  Country: None (occurrence: None)
  Receive Date: 20100622
  Receipt Date: 20090923
  Transmission Date: 20101027
  Serious: Yes (Death)
  Sender: FDA-Public Use
  Company Number: US-GENZYME-THYM-1001217

PATIENT
  Age: 14 Month
  Sex: Female

DRUGS (4)
  1. THYMOGLOBULIN [Suspect]
     Indication: SMALL INTESTINE TRANSPLANT
     Dosage: 3 MG/KG, UNK
     Route: 042
  2. THYMOGLOBULIN [Suspect]
     Indication: LIVER TRANSPLANT
     Dosage: 2 MG/KG, UNK
     Route: 042
  3. TACROLIMUS [Suspect]
     Indication: IMMUNOSUPPRESSION
  4. STEROIDS [Concomitant]
     Indication: IMMUNOSUPPRESSION

REACTIONS (1)
  - EPSTEIN-BARR VIRUS ASSOCIATED LYMPHOPROLIFERATIVE DISORDER [None]
